FAERS Safety Report 23934503 (Version 2)
Quarter: 2024Q4

REPORT INFORMATION
  Report Type: Report from Study
  Country: US (occurrence: US)
  Receive Date: 20240603
  Receipt Date: 20241004
  Transmission Date: 20250115
  Serious: Yes (Other)
  Sender: GENMAB
  Company Number: US-GENMAB-2023-01406

PATIENT
  Age: 61 Year
  Sex: Female

DRUGS (3)
  1. EPKINLY [Suspect]
     Active Substance: EPCORITAMAB-BYSP
     Indication: Diffuse large B-cell lymphoma
     Dosage: 0.16 MILLIGRAM
     Route: 058
     Dates: start: 20230723
  2. EPKINLY [Suspect]
     Active Substance: EPCORITAMAB-BYSP
     Dosage: 0.16 MILLIGRAM (STEP-UP DOSE 1/FIRST PRIMING DOSE)
     Route: 058
     Dates: start: 20240221
  3. EPKINLY [Suspect]
     Active Substance: EPCORITAMAB-BYSP
     Dosage: UNK (FIRST FULL DOSE)
     Route: 065

REACTIONS (8)
  - Platelet count decreased [Unknown]
  - Cough [Unknown]
  - Visual acuity reduced [Unknown]
  - Rash pruritic [Unknown]
  - Laziness [Unknown]
  - Fatigue [Unknown]
  - Injection site rash [Unknown]
  - Nausea [Unknown]

NARRATIVE: CASE EVENT DATE: 20240223
